FAERS Safety Report 23297152 (Version 1)
Quarter: 2023Q4

REPORT INFORMATION
  Report Type: Spontaneous
  Country: US (occurrence: US)
  Receive Date: 20231214
  Receipt Date: 20231214
  Transmission Date: 20240110
  Serious: No
  Sender: FDA-Public Use
  Company Number: US-BRISTOL-MYERS SQUIBB COMPANY-2023-179830

PATIENT
  Age: 53 Year
  Sex: Female
  Weight: 70.31 kg

DRUGS (1)
  1. ORENCIA [Suspect]
     Active Substance: ABATACEPT
     Indication: Product used for unknown indication
     Dosage: DOSE : 750 MG;     FREQ : 750 MG EVER 4 WEEKS
     Route: 042
     Dates: start: 20220118

REACTIONS (1)
  - Pain in extremity [Unknown]
